FAERS Safety Report 15051479 (Version 2)
Quarter: 2018Q2

REPORT INFORMATION
  Report Type: Spontaneous
  Country: AU (occurrence: AU)
  Receive Date: 20180622
  Receipt Date: 20180626
  Transmission Date: 20180711
  Serious: Yes (Death, Other)
  Sender: FDA-Public Use
  Company Number: AU-AMGEN-AUSSP2018084189

PATIENT
  Age: 66 Year

DRUGS (5)
  1. XELOX [Concomitant]
     Active Substance: CAPECITABINE\OXALIPLATIN
     Indication: ADENOCARCINOMA OF COLON
     Dosage: UNK
  2. IRINOTECAN [Concomitant]
     Active Substance: IRINOTECAN
     Indication: METASTASES TO LIVER
  3. XELOX [Concomitant]
     Active Substance: CAPECITABINE\OXALIPLATIN
     Indication: METASTASES TO LIVER
  4. PANITUMUMAB [Suspect]
     Active Substance: PANITUMUMAB
     Indication: ADENOCARCINOMA OF COLON
     Dosage: UNK
     Route: 065
  5. IRINOTECAN [Concomitant]
     Active Substance: IRINOTECAN
     Indication: ADENOCARCINOMA OF COLON
     Dosage: UNK
     Dates: end: 201307

REACTIONS (1)
  - Death [Fatal]

NARRATIVE: CASE EVENT DATE: 201310
